FAERS Safety Report 5049995-6 (Version None)
Quarter: 2006Q2

REPORT INFORMATION
  Report Type: 
  Country: None (occurrence: None)
  Receive Date: 20060614
  Receipt Date: 20060320
  Transmission Date: 20061013
  Serious: Yes (Hospitalization)
  Sender: FDA-Public Use
  Company Number: 436825

PATIENT
  Age: 72 Year
  Sex: Female
  Weight: 63.5 kg

DRUGS (2)
  1. BONIVA [Suspect]
     Indication: OSTEOPOROSIS
     Dosage: 150 MG 1 PER MONTH ORAL
     Route: 048
     Dates: start: 20050925
  2. CALCIUM/VITAMIN D (CALCIUM/VITAMIN D) [Concomitant]

REACTIONS (3)
  - DIARRHOEA [None]
  - OESOPHAGEAL ULCER [None]
  - STOMACH DISCOMFORT [None]
